FAERS Safety Report 4903861-2 (Version None)
Quarter: 2006Q1

REPORT INFORMATION
  Report Type: 
  Country: None (occurrence: None)
  Receive Date: 20060208
  Receipt Date: 20050715
  Transmission Date: 20060701
  Serious: No
  Sender: FDA-Public Use
  Company Number: US-GLAXOSMITHKLINE-A0566462A

PATIENT
  Sex: Female

DRUGS (2)
  1. PAXIL [Suspect]
     Indication: OBSESSIVE-COMPULSIVE DISORDER
     Route: 065
     Dates: start: 19930101
  2. PAXIL CR [Suspect]
     Indication: OBSESSIVE-COMPULSIVE DISORDER

REACTIONS (4)
  - BLOOD CHOLESTEROL INCREASED [None]
  - DYSKINESIA [None]
  - TREMOR [None]
  - WEIGHT INCREASED [None]
